FAERS Safety Report 8481077-3 (Version None)
Quarter: 2012Q3

REPORT INFORMATION
  Report Type: 
  Country: None (occurrence: None)
  Receive Date: 20120702
  Receipt Date: 20120627
  Transmission Date: 20120928
  Serious: Yes (Death)
  Sender: FDA-Public Use
  Company Number: PHEH2012US012720

PATIENT
  Sex: Female

DRUGS (1)
  1. SANDOSTATIN LAR [Suspect]
     Dosage: UNK
     Dates: start: 20120615

REACTIONS (1)
  - DEATH [None]
